FAERS Safety Report 10072675 (Version 1)
Quarter: 2014Q2

REPORT INFORMATION
  Report Type: Spontaneous
  Country: CA (occurrence: CA)
  Receive Date: 20140411
  Receipt Date: 20140411
  Transmission Date: 20141212
  Serious: Yes (Hospitalization)
  Sender: FDA-Public Use
  Company Number: CA-009507513-1404CAN002304

PATIENT
  Age: 51 Year
  Sex: Female

DRUGS (6)
  1. TEMODAL [Suspect]
     Dosage: UNK, DOSAGE FORM NOT SPECIFIED
     Route: 065
  2. DEXAMETHASONE [Concomitant]
  3. DILANTIN [Concomitant]
  4. LOVENOX [Concomitant]
  5. PARIET [Concomitant]
  6. SENOKOT (SENNA) [Concomitant]

REACTIONS (3)
  - Haemoglobin decreased [Unknown]
  - Neutrophil count decreased [Unknown]
  - Platelet count decreased [Unknown]
